FAERS Safety Report 20514372 (Version 2)
Quarter: 2022Q1

REPORT INFORMATION
  Report Type: Report from Study
  Country: US (occurrence: US)
  Receive Date: 20220224
  Receipt Date: 20220303
  Transmission Date: 20220424
  Serious: Yes (Life-Threatening, Other)
  Sender: FDA-Public Use
  Company Number: US-NOVARTISPH-NVSC2022US041683

PATIENT
  Age: 43 Year
  Sex: Male

DRUGS (1)
  1. ENTRESTO [Suspect]
     Active Substance: SACUBITRIL\VALSARTAN
     Indication: Product used for unknown indication
     Dosage: UNK
     Route: 048
     Dates: start: 20220128

REACTIONS (10)
  - Ejection fraction decreased [Unknown]
  - Somnolence [Unknown]
  - Anger [Unknown]
  - Anxiety [Recovering/Resolving]
  - Palpitations [Unknown]
  - Mental disorder [Unknown]
  - Cardiac disorder [Unknown]
  - Flushing [Unknown]
  - Poor peripheral circulation [Not Recovered/Not Resolved]
  - Fatigue [Unknown]

NARRATIVE: CASE EVENT DATE: 20220128
